FAERS Safety Report 8238769 (Version 6)
Quarter: 2013Q2

REPORT INFORMATION
  Report Type: Spontaneous
  Country: IE (occurrence: IE)
  Receive Date: 20111110
  Receipt Date: 20130616
  Transmission Date: 20140414
  Serious: Yes (Other)
  Sender: FDA-Public Use
  Company Number: IE-US-EMD SERONO, INC.-7093562

PATIENT
  Age: 50 Year
  Sex: Female

DRUGS (4)
  1. REBIF [Suspect]
     Indication: RELAPSING-REMITTING MULTIPLE SCLEROSIS
     Route: 058
     Dates: start: 20031030
  2. STILNOCT [Concomitant]
     Indication: SLEEP DISORDER
     Dates: start: 201110
  3. RIVOTRIL [Concomitant]
     Indication: SENSATION OF HEAVINESS
     Route: 048
     Dates: start: 201109
  4. LOSEC                              /00661201/ [Concomitant]
     Indication: PRODUCT USED FOR UNKNOWN INDICATION
     Dates: start: 201112

REACTIONS (7)
  - Respiratory tract infection [Recovered/Resolved]
  - Sinusitis [Unknown]
  - Spinal compression fracture [Not Recovered/Not Resolved]
  - Gastric ulcer [Unknown]
  - Back pain [Recovered/Resolved]
  - Abdominal pain [Not Recovered/Not Resolved]
  - Injection site induration [Unknown]
